FAERS Safety Report 10178036 (Version 1)
Quarter: 2014Q2

REPORT INFORMATION
  Report Type: Spontaneous
  Country: None (occurrence: GB)
  Receive Date: 20140517
  Receipt Date: 20140517
  Transmission Date: 20141212
  Serious: Yes (Hospitalization)
  Sender: FDA-Public Use
  Company Number: GB-ACCORD-023612

PATIENT
  Age: 70 Year
  Sex: Female

DRUGS (4)
  1. LEVETIRACETAM [Suspect]
     Indication: PRODUCT USED FOR UNKNOWN INDICATION
     Route: 065
  2. CLOBAZAM [Concomitant]
  3. SERTRALINE/SERTRALINE HYDROCHLORIDE [Concomitant]
  4. EPILIM [Suspect]
     Indication: PRODUCT USED FOR UNKNOWN INDICATION

REACTIONS (8)
  - Accidental overdose [Unknown]
  - Confusional state [Unknown]
  - Fall [Unknown]
  - Cerebral haemorrhage [Unknown]
  - Pyrexia [Unknown]
  - Somnolence [Unknown]
  - Asthenia [Unknown]
  - Urinary tract infection [Unknown]
